FAERS Safety Report 24756142 (Version 7)
Quarter: 2025Q3

REPORT INFORMATION
  Report Type: Report from Study
  Country: US (occurrence: US)
  Receive Date: 20241219
  Receipt Date: 20250814
  Transmission Date: 20251021
  Serious: Yes (Hospitalization)
  Sender: SANOFI AVENTIS
  Company Number: US-SA-2024SA351629

PATIENT
  Age: 82 Year
  Sex: Female
  Weight: 101 kg

DRUGS (55)
  1. ISATUXIMAB-IRFC [Suspect]
     Active Substance: ISATUXIMAB-IRFC
     Indication: Plasma cell myeloma refractory
     Dosage: 1100 MG, QW
     Dates: start: 20211002, end: 20211009
  2. ISATUXIMAB-IRFC [Suspect]
     Active Substance: ISATUXIMAB-IRFC
     Dosage: 1100 MG, BIW
     Dates: start: 20211111, end: 20211212
  3. ISATUXIMAB-IRFC [Suspect]
     Active Substance: ISATUXIMAB-IRFC
     Dosage: 1100 MG, BIW
     Dates: start: 20211213, end: 20220109
  4. ISATUXIMAB-IRFC [Suspect]
     Active Substance: ISATUXIMAB-IRFC
     Dosage: 1100 MG, BIW
     Dates: start: 20220110, end: 20220206
  5. ISATUXIMAB-IRFC [Suspect]
     Active Substance: ISATUXIMAB-IRFC
     Dosage: 1100 MG, BIW
     Dates: start: 20220221, end: 20220306
  6. ISATUXIMAB-IRFC [Suspect]
     Active Substance: ISATUXIMAB-IRFC
     Dosage: 1100 MG, BIW
     Dates: start: 20220321, end: 20220417
  7. ISATUXIMAB-IRFC [Suspect]
     Active Substance: ISATUXIMAB-IRFC
     Dosage: 1100 MG, BIW
     Dates: start: 20220502, end: 20220515
  8. ISATUXIMAB-IRFC [Suspect]
     Active Substance: ISATUXIMAB-IRFC
     Dosage: 1100 MG, BIW
     Dates: start: 20220516, end: 20220613
  9. ISATUXIMAB-IRFC [Suspect]
     Active Substance: ISATUXIMAB-IRFC
     Dosage: 1000 MG, BIW
     Dates: start: 20220628, end: 20220725
  10. ISATUXIMAB-IRFC [Suspect]
     Active Substance: ISATUXIMAB-IRFC
     Dosage: 1000 MG, BIW
     Dates: start: 20220726, end: 20220812
  11. ISATUXIMAB-IRFC [Suspect]
     Active Substance: ISATUXIMAB-IRFC
     Dosage: 1000 MG, BIW
     Dates: start: 20220906, end: 20221003
  12. ISATUXIMAB-IRFC [Suspect]
     Active Substance: ISATUXIMAB-IRFC
     Dosage: 1000 MG, BIW
     Dates: start: 20221004, end: 20221017
  13. DEXAMETHASONE [Suspect]
     Active Substance: DEXAMETHASONE
     Indication: Plasma cell myeloma refractory
     Dosage: 20 MG, QW
     Dates: start: 20211002, end: 20211009
  14. DEXAMETHASONE [Suspect]
     Active Substance: DEXAMETHASONE
     Dosage: 10 MG, BIW
     Dates: start: 20211111, end: 20211212
  15. DEXAMETHASONE [Suspect]
     Active Substance: DEXAMETHASONE
     Dosage: 10 MG, BIW
     Dates: start: 20211213, end: 20220109
  16. DEXAMETHASONE [Suspect]
     Active Substance: DEXAMETHASONE
     Dosage: 10 MG, BIW
     Dates: start: 20220110, end: 20220206
  17. DEXAMETHASONE [Suspect]
     Active Substance: DEXAMETHASONE
     Dosage: 10 MG, BIW
     Dates: start: 20220221, end: 20220306
  18. DEXAMETHASONE [Suspect]
     Active Substance: DEXAMETHASONE
     Dosage: 10 MG, BIW
     Dates: start: 20220307, end: 20220417
  19. DEXAMETHASONE [Suspect]
     Active Substance: DEXAMETHASONE
     Dosage: 10 MG, BIW
     Dates: start: 20220502, end: 20220515
  20. DEXAMETHASONE [Suspect]
     Active Substance: DEXAMETHASONE
     Dosage: 10 MG, BIW
     Dates: start: 20220516, end: 20220613
  21. DEXAMETHASONE [Suspect]
     Active Substance: DEXAMETHASONE
     Dosage: 10 MG, BIW
     Dates: start: 20220628, end: 20220725
  22. DEXAMETHASONE [Suspect]
     Active Substance: DEXAMETHASONE
     Dosage: 10 MG, BIW
     Dates: start: 20220726, end: 20220812
  23. DEXAMETHASONE [Suspect]
     Active Substance: DEXAMETHASONE
     Dosage: 10 MG, BIW
     Dates: start: 20220906, end: 20221003
  24. DEXAMETHASONE [Suspect]
     Active Substance: DEXAMETHASONE
     Dosage: 8 MG, BIW
     Dates: start: 20221004, end: 20221017
  25. CARFILZOMIB [Suspect]
     Active Substance: CARFILZOMIB
     Indication: Plasma cell myeloma refractory
     Dates: start: 20211002, end: 20211006
  26. CARFILZOMIB [Suspect]
     Active Substance: CARFILZOMIB
     Dosage: 80 MG, BIW
     Dates: start: 20211111, end: 20211212
  27. CARFILZOMIB [Suspect]
     Active Substance: CARFILZOMIB
     Dosage: 80 MG, BIW
     Dates: start: 20211213, end: 20220109
  28. CARFILZOMIB [Suspect]
     Active Substance: CARFILZOMIB
     Dosage: 80 MG, BIW
     Dates: start: 20220110, end: 20220206
  29. CARFILZOMIB [Suspect]
     Active Substance: CARFILZOMIB
     Dates: start: 20211007, end: 20211009
  30. CARFILZOMIB [Suspect]
     Active Substance: CARFILZOMIB
     Dates: start: 20220221, end: 20220306
  31. CARFILZOMIB [Suspect]
     Active Substance: CARFILZOMIB
     Dates: start: 20220321, end: 20220417
  32. CARFILZOMIB [Suspect]
     Active Substance: CARFILZOMIB
     Dates: start: 20220502, end: 20220515
  33. CARFILZOMIB [Suspect]
     Active Substance: CARFILZOMIB
     Dates: start: 20220516, end: 20220613
  34. CARFILZOMIB [Suspect]
     Active Substance: CARFILZOMIB
     Dates: start: 20220614, end: 20220725
  35. CARFILZOMIB [Suspect]
     Active Substance: CARFILZOMIB
     Dates: start: 20220726, end: 20220812
  36. CARFILZOMIB [Suspect]
     Active Substance: CARFILZOMIB
     Dates: start: 20220906, end: 20221003
  37. CARFILZOMIB [Suspect]
     Active Substance: CARFILZOMIB
     Dates: start: 20221004, end: 20221017
  38. DULOXETINE [Concomitant]
     Active Substance: DULOXETINE
     Dates: start: 20200429
  39. LEVOTHYROXINE [Concomitant]
     Active Substance: LEVOTHYROXINE
     Dates: start: 20171002
  40. METFORMIN [Concomitant]
     Active Substance: METFORMIN HYDROCHLORIDE
     Dates: start: 20200717
  41. VALTREX [Concomitant]
     Active Substance: VALACYCLOVIR HYDROCHLORIDE
     Dates: start: 20181227
  42. PANTOPRAZOLE [Concomitant]
     Active Substance: PANTOPRAZOLE
     Dates: start: 20170509
  43. PROAIR HFA [Concomitant]
     Active Substance: ALBUTEROL SULFATE
     Dates: start: 20200124
  44. ADVAIR HFA [Concomitant]
     Active Substance: FLUTICASONE PROPIONATE\SALMETEROL XINAFOATE
     Dates: start: 20210308
  45. FUROSEMIDE [Concomitant]
     Active Substance: FUROSEMIDE
     Dates: start: 20170103
  46. GABAPENTIN [Concomitant]
     Active Substance: GABAPENTIN
     Dates: start: 20200326
  47. VITAMIN D2 [Concomitant]
     Active Substance: ERGOCALCIFEROL
     Indication: Prophylaxis
     Dates: start: 201706
  48. ASPIRIN [Concomitant]
     Active Substance: ASPIRIN
     Dates: start: 20210924
  49. LOVASTATIN [Concomitant]
     Active Substance: LOVASTATIN
     Dates: start: 20190624
  50. CARVEDILOL [Concomitant]
     Active Substance: CARVEDILOL
     Dates: start: 20200217
  51. MAGNESIUM OXIDE [Concomitant]
     Active Substance: MAGNESIUM OXIDE
     Dates: start: 201711
  52. TYLENOL [Concomitant]
     Active Substance: ACETAMINOPHEN
     Dates: start: 20211002
  53. PEPCID [Concomitant]
     Active Substance: FAMOTIDINE
     Indication: Dyspepsia
     Dates: start: 20211002
  54. BENADRYL [Concomitant]
     Active Substance: DIPHENHYDRAMINE HYDROCHLORIDE
     Dates: start: 20211002
  55. ONDANSETRON [Concomitant]
     Active Substance: ONDANSETRON
     Dates: start: 20211002

REACTIONS (7)
  - Biliary colic [Recovered/Resolved]
  - COVID-19 pneumonia [Recovered/Resolved]
  - Urinary tract infection [Recovered/Resolved]
  - Urinary tract infection [Recovered/Resolved]
  - Urinary tract infection [Recovered/Resolved]
  - COVID-19 [Recovered/Resolved]
  - COVID-19 [Recovered/Resolved]

NARRATIVE: CASE EVENT DATE: 20220205
